FAERS Safety Report 5101563-3 (Version None)
Quarter: 2006Q3

REPORT INFORMATION
  Report Type: 
  Country: None (occurrence: None)
  Receive Date: 20060911
  Receipt Date: 20060830
  Transmission Date: 20061208
  Serious: Yes (Other)
  Sender: FDA-Public Use
  Company Number: JP-BRISTOL-MYERS SQUIBB COMPANY-13494380

PATIENT
  Age: 62 Year
  Sex: Female

DRUGS (6)
  1. TAXOL [Suspect]
     Indication: BREAST CANCER
     Route: 042
     Dates: start: 20030701
  2. ENDOXAN [Suspect]
     Indication: BREAST CANCER
     Route: 042
     Dates: start: 20030701
  3. ADRIAMYCIN PFS [Suspect]
     Indication: BREAST CANCER
     Route: 042
     Dates: start: 20030701
  4. HERCEPTIN [Concomitant]
     Indication: BREAST CANCER METASTATIC
     Dosage: LATER DECREASED TO 2MG/KG; ALSO TREATMENT STARTING JAN-2006
     Route: 042
     Dates: start: 20050101
  5. AREDIA [Concomitant]
     Indication: BREAST CANCER METASTATIC
     Route: 042
     Dates: start: 20050101
  6. NAVELBINE [Concomitant]
     Indication: BREAST CANCER METASTATIC
     Route: 042
     Dates: start: 20060101

REACTIONS (3)
  - ACUTE MYELOID LEUKAEMIA [None]
  - PANCYTOPENIA [None]
  - TREATMENT RELATED SECONDARY MALIGNANCY [None]
